FAERS Safety Report 15799304 (Version 3)
Quarter: 2019Q1

REPORT INFORMATION
  Report Type: Report from Study
  Country: US (occurrence: US)
  Receive Date: 20190108
  Receipt Date: 20190130
  Transmission Date: 20190417
  Serious: Yes (Life-Threatening, Hospitalization)
  Sender: FDA-Public Use
  Company Number: US-PFIZER INC-2019003583

PATIENT
  Age: 84 Year
  Sex: Female
  Weight: 111.7 kg

DRUGS (18)
  1. LOPRESSOR [Concomitant]
     Active Substance: METOPROLOL TARTRATE
     Indication: HYPERTENSION
     Dosage: UNK
     Dates: start: 20131202
  2. LASIX [Concomitant]
     Active Substance: FUROSEMIDE
     Indication: LYMPHOEDEMA
     Dosage: UNK
     Dates: start: 20140612
  3. NORCO [Concomitant]
     Active Substance: ACETAMINOPHEN\HYDROCODONE BITARTRATE
     Indication: BONE PAIN
     Dosage: UNK
     Dates: start: 20110415
  4. CENTRUM SILVER [Concomitant]
     Active Substance: MINERALS\VITAMINS
     Indication: PROPHYLAXIS
     Dosage: UNK
     Dates: start: 20070330
  5. PALBOCICLIB [Suspect]
     Active Substance: PALBOCICLIB
     Indication: BREAST CANCER METASTATIC
     Dosage: 100 MG, CYCLIC (DALIY FOR 3 WEEK FOLLOWED BY 1 WEEK OFF)
     Route: 048
     Dates: start: 20140430, end: 20181229
  6. ACTOS [Concomitant]
     Active Substance: PIOGLITAZONE HYDROCHLORIDE
     Indication: DIABETES MELLITUS
     Dosage: UNK
     Dates: start: 20140425
  7. ZOFRAN [Concomitant]
     Active Substance: ONDANSETRON HYDROCHLORIDE
     Indication: NAUSEA
     Dosage: UNK
     Dates: start: 20140801
  8. NORCO [Concomitant]
     Active Substance: ACETAMINOPHEN\HYDROCODONE BITARTRATE
     Indication: CERVICAL SPINAL STENOSIS
  9. VITAMIN B COMPLEX [Concomitant]
     Active Substance: CYANOCOBALAMIN\DEXPANTHENOL\NIACINAMIDE\PYRIDOXINE HYDROCHLORIDE\RIBOFLAVIN 5^-PHOSPHATE SODIUM\THIAMINE HYDROCHLORIDE\VITAMIN B COMPLEX
     Indication: PROPHYLAXIS
     Dosage: UNK
     Dates: start: 20181006
  10. FLONASE [Concomitant]
     Active Substance: FLUTICASONE PROPIONATE
     Indication: SEASONAL ALLERGY
     Dosage: UNK
     Dates: start: 20131218
  11. COZAAR [Concomitant]
     Active Substance: LOSARTAN POTASSIUM
     Indication: HYPERTENSION
     Dosage: UNK
     Dates: start: 20140529
  12. LEVOTHYROXINE. [Concomitant]
     Active Substance: LEVOTHYROXINE
     Indication: HYPOTHYROIDISM
     Dosage: UNK
     Dates: start: 20130425
  13. XALATAN [Concomitant]
     Active Substance: LATANOPROST
     Indication: SEASONAL ALLERGY
     Dosage: UNK
     Dates: start: 20140425
  14. FASLODEX [Suspect]
     Active Substance: FULVESTRANT
     Indication: BREAST CANCER METASTATIC
     Dosage: 500 MG, CYCLIC, DAYS 1 AND 15 OF CYCLE 1, THEN DAY 1 OF EACH SUBSEQUENT 28-DAY CYCLE
     Route: 030
     Dates: start: 20140430, end: 20181229
  15. AMARYL [Concomitant]
     Active Substance: GLIMEPIRIDE
     Indication: DIABETES MELLITUS
     Dosage: UNK
     Dates: start: 20131112
  16. ATIVAN [Concomitant]
     Active Substance: LORAZEPAM
     Indication: NAUSEA
     Dosage: UNK
     Dates: start: 20150723
  17. ASPIRIN (E.C.) [Concomitant]
     Active Substance: ASPIRIN
     Indication: CORONARY ARTERY DISEASE
     Dosage: UNK
     Dates: start: 20130809
  18. PRAVACHOL [Concomitant]
     Active Substance: PRAVASTATIN SODIUM
     Indication: HYPERLIPIDAEMIA
     Dosage: UNK
     Dates: start: 20140602

REACTIONS (4)
  - Hypokalaemia [Recovered/Resolved]
  - Febrile neutropenia [Recovered/Resolved]
  - Sepsis [Recovered/Resolved]
  - Colitis [Recovered/Resolved]

NARRATIVE: CASE EVENT DATE: 20181228
